FAERS Safety Report 16785027 (Version 2)
Quarter: 2020Q3

REPORT INFORMATION
  Report Type: Spontaneous
  Country: US (occurrence: US)
  Receive Date: 20190909
  Receipt Date: 20200916
  Transmission Date: 20201102
  Serious: No
  Sender: FDA-Public Use
  Company Number: US-ALLERGAN-1929857US

PATIENT
  Sex: Female

DRUGS (3)
  1. OVER THE COUNTER FACIAL HAIR REMOVER [Concomitant]
     Indication: HAIR GROWTH ABNORMAL
     Dosage: UNK
     Route: 065
  2. VANIQA [Suspect]
     Active Substance: EFLORNITHINE HYDROCHLORIDE
     Indication: HAIR GROWTH ABNORMAL
     Dosage: ONCE DAILY
     Route: 061
     Dates: start: 2019, end: 201908
  3. VANIQA [Suspect]
     Active Substance: EFLORNITHINE HYDROCHLORIDE
     Dosage: USE TWICE DAILY IN MORNING AND EVENING
     Route: 061
     Dates: start: 201906, end: 201907

REACTIONS (1)
  - Drug ineffective [Unknown]
